FAERS Safety Report 11224115 (Version 1)
Quarter: 2015Q2

REPORT INFORMATION
  Report Type: Spontaneous
  Country: US (occurrence: None)
  Receive Date: 20150626
  Receipt Date: 20150626
  Transmission Date: 20150821
  Serious: Yes (Death)
  Sender: FDA-Public Use
  Company Number: None

PATIENT
  Age: 80 Year
  Sex: Female

DRUGS (17)
  1. ETHACRYNIC ACID [Concomitant]
     Active Substance: ETHACRYNIC ACID
  2. TRACLEER [Suspect]
     Active Substance: BOSENTAN\BOSENTAN MONOHYDRATE
     Indication: CONNECTIVE TISSUE DISORDER
     Route: 048
     Dates: start: 2007, end: 20150509
  3. NORTRIPTYLINE [Concomitant]
     Active Substance: NORTRIPTYLINE
  4. WARFARIN [Concomitant]
     Active Substance: WARFARIN
  5. BOSENTAN [Concomitant]
     Active Substance: BOSENTAN\BOSENTAN MONOHYDRATE
  6. METOPROLOL [Concomitant]
     Active Substance: METOPROLOL
  7. TIMOLOL DROPS [Concomitant]
  8. LATANOPROST. [Concomitant]
     Active Substance: LATANOPROST
  9. DIGOXIN. [Concomitant]
     Active Substance: DIGOXIN
  10. SEVELAMER [Concomitant]
     Active Substance: SEVELAMER
  11. TRACLEER [Suspect]
     Active Substance: BOSENTAN\BOSENTAN MONOHYDRATE
     Indication: PULMONARY ARTERIAL HYPERTENSION
     Route: 048
     Dates: start: 2007, end: 20150509
  12. TRACLEER [Suspect]
     Active Substance: BOSENTAN\BOSENTAN MONOHYDRATE
     Indication: HEART DISEASE CONGENITAL
     Route: 048
     Dates: start: 2007, end: 20150509
  13. LOVASTATIN. [Concomitant]
     Active Substance: LOVASTATIN
  14. ONDANSETRON [Concomitant]
     Active Substance: ONDANSETRON
  15. PIOGLITAZONE [Concomitant]
     Active Substance: PIOGLITAZONE
  16. LIDOCAINE. [Concomitant]
     Active Substance: LIDOCAINE
  17. CINACALCET [Concomitant]
     Active Substance: CINACALCET

REACTIONS (4)
  - Cellulitis [None]
  - Fall [None]
  - Sepsis [None]
  - Hypophagia [None]

NARRATIVE: CASE EVENT DATE: 20150521
